FAERS Safety Report 4968511-8 (Version None)
Quarter: 2006Q2

REPORT INFORMATION
  Report Type: 
  Country: None (occurrence: None)
  Receive Date: 20060410
  Receipt Date: 20060307
  Transmission Date: 20061013
  Serious: Yes (Hospitalization)
  Sender: FDA-Public Use
  Company Number: US-MERCK-0603USA01343

PATIENT
  Age: 80 Year
  Sex: Male
  Weight: 82 kg

DRUGS (3)
  1. VIOXX [Suspect]
     Indication: ARTHRITIS
     Route: 048
     Dates: start: 20011101, end: 20041001
  2. DOXAZOSIN MESYLATE [Concomitant]
     Route: 065
  3. PROSCAR [Concomitant]
     Route: 065

REACTIONS (3)
  - ANXIETY [None]
  - GENERAL PHYSICAL HEALTH DETERIORATION [None]
  - MYOCARDIAL INFARCTION [None]
